FAERS Safety Report 5791996-4 (Version None)
Quarter: 2008Q2

REPORT INFORMATION
  Report Type: 
  Country: None (occurrence: None)
  Receive Date: 20080618
  Receipt Date: 20080313
  Transmission Date: 20081010
  Serious: Yes (Other)
  Sender: FDA-Public Use
  Company Number: 200811454US

PATIENT
  Age: 39 Year
  Sex: Female

DRUGS (2)
  1. LANTUS [Suspect]
     Indication: TYPE 1 DIABETES MELLITUS
     Dosage: 28 U QD INJ
     Dates: start: 20020101
  2. NOVOLOG [Concomitant]

REACTIONS (1)
  - HYPOGLYCAEMIA [None]
